FAERS Safety Report 5921773-2 (Version None)
Quarter: 2008Q4

REPORT INFORMATION
  Report Type: 
  Country: None (occurrence: None)
  Receive Date: 20081017
  Receipt Date: 20081009
  Transmission Date: 20090506
  Serious: Yes (Death, Hospitalization, Other)
  Sender: FDA-Public Use
  Company Number: JP-BAYER-JP-2004-036212

PATIENT
  Age: 59 Year
  Sex: Male
  Weight: 56 kg

DRUGS (30)
  1. FLUDARA [Suspect]
     Indication: CHRONIC LYMPHOCYTIC LEUKAEMIA
     Dosage: TOTAL DAILY DOSE: 38.125 MG  UNIT DOSE: 50 MG
     Route: 042
     Dates: start: 20040203, end: 20040205
  2. FLUDARA [Suspect]
     Dosage: TOTAL DAILY DOSE: 38 MG  UNIT DOSE: 50 MG
     Route: 042
     Dates: start: 20040303, end: 20040305
  3. FLUDARA [Suspect]
     Dosage: TOTAL DAILY DOSE: 38 MG  UNIT DOSE: 50 MG
     Route: 042
     Dates: start: 20040413, end: 20040415
  4. FLUDARA [Suspect]
     Dosage: TOTAL DAILY DOSE: 38 MG  UNIT DOSE: 50 MG
     Route: 042
     Dates: start: 20040603, end: 20040605
  5. RITUXAN [Concomitant]
     Indication: CHRONIC LYMPHOCYTIC LEUKAEMIA
     Dosage: TOTAL DAILY DOSE: 600 MG  UNIT DOSE: 500 MG
     Route: 041
     Dates: start: 20040202, end: 20040202
  6. RITUXAN [Concomitant]
     Dosage: TOTAL DAILY DOSE: 600 MG  UNIT DOSE: 500 MG
     Route: 041
     Dates: start: 20040602, end: 20040602
  7. RITUXAN [Concomitant]
     Dosage: TOTAL DAILY DOSE: 600 MG  UNIT DOSE: 500 MG
     Route: 041
     Dates: start: 20040302, end: 20040302
  8. RITUXAN [Concomitant]
     Dosage: TOTAL DAILY DOSE: 600 MG  UNIT DOSE: 500 MG
     Route: 041
     Dates: start: 20040412, end: 20040412
  9. ENDOXAN [Concomitant]
     Indication: CHRONIC LYMPHOCYTIC LEUKAEMIA
     Dosage: TOTAL DAILY DOSE: 450 MG
     Route: 042
     Dates: start: 20040603, end: 20040605
  10. ENDOXAN [Concomitant]
     Dosage: TOTAL DAILY DOSE: 450 MG
     Route: 042
     Dates: start: 20040303, end: 20040305
  11. ENDOXAN [Concomitant]
     Dosage: TOTAL DAILY DOSE: 450 MG
     Route: 042
     Dates: start: 20040203, end: 20040205
  12. ENDOXAN [Concomitant]
     Dosage: TOTAL DAILY DOSE: 450 MG
     Route: 042
     Dates: start: 20040413, end: 20040415
  13. BLOPRESS [Concomitant]
     Indication: HYPERTENSION
     Dosage: TOTAL DAILY DOSE: 4 MG  UNIT DOSE: 4 MG
     Route: 048
     Dates: start: 20031210
  14. NORVASC [Concomitant]
     Indication: HYPERTENSION
     Dosage: TOTAL DAILY DOSE: 5 MG  UNIT DOSE: 5 MG
     Route: 048
     Dates: start: 20031210
  15. LANIRAPID [Concomitant]
     Indication: CARDIAC FAILURE
     Dosage: TOTAL DAILY DOSE: 0.1 MG  UNIT DOSE: 0.1 MG
     Route: 048
     Dates: start: 20031210
  16. DIART [Concomitant]
     Indication: CARDIAC FAILURE
     Dosage: TOTAL DAILY DOSE: 60 MG  UNIT DOSE: 60 MG
     Route: 048
     Dates: start: 20031210
  17. SLOW-K [Concomitant]
     Indication: HYPOKALAEMIA
     Dosage: TOTAL DAILY DOSE: 600 MG
     Route: 048
     Dates: start: 20040303, end: 20040306
  18. SLOW-K [Concomitant]
     Dosage: TOTAL DAILY DOSE: 600 MG
     Route: 048
     Dates: start: 20031210
  19. WARFARIN SODIUM [Concomitant]
     Indication: EMBOLISM
     Dosage: TOTAL DAILY DOSE: 3 MG
     Route: 048
     Dates: start: 20031210
  20. ASPIRIN [Concomitant]
     Indication: EMBOLISM
     Dosage: TOTAL DAILY DOSE: 200 MG  UNIT DOSE: 100 MG
     Route: 048
     Dates: start: 20031210
  21. SELBEX [Concomitant]
     Indication: GASTRITIS
     Dosage: TOTAL DAILY DOSE: 100 MG
     Route: 048
     Dates: start: 20031210
  22. GASTER D [Concomitant]
     Indication: GASTRIC ULCER
     Dosage: TOTAL DAILY DOSE: 40 MG
     Route: 048
     Dates: start: 20040202, end: 20040205
  23. ZYLORIC [Concomitant]
     Indication: PROPHYLAXIS
     Dosage: TOTAL DAILY DOSE: 200 MG  UNIT DOSE: 100 MG
     Route: 048
     Dates: start: 20040202, end: 20040205
  24. COTRIM [Concomitant]
     Indication: ANTIFUNGAL PROPHYLAXIS
     Dosage: TOTAL DAILY DOSE: 960 MG  UNIT DOSE: 960 MG
     Route: 048
     Dates: start: 20040207, end: 20040217
  25. COTRIM [Concomitant]
     Dosage: TOTAL DAILY DOSE: 960 MG  UNIT DOSE: 960 MG
     Route: 048
     Dates: start: 20040306, end: 20040312
  26. LASIX [Concomitant]
     Indication: PROPHYLAXIS
     Dosage: TOTAL DAILY DOSE: 20 MG  UNIT DOSE: 20 MG
     Route: 042
     Dates: start: 20040202, end: 20040205
  27. LASIX [Concomitant]
     Dosage: TOTAL DAILY DOSE: 20 MG  UNIT DOSE: 20 MG
     Route: 042
     Dates: start: 20040302, end: 20040305
  28. ZOFRAN [Concomitant]
     Indication: PROPHYLAXIS OF NAUSEA AND VOMITING
     Dosage: TOTAL DAILY DOSE: 4 MG
     Route: 048
     Dates: start: 20040206, end: 20040211
  29. NAUZELIN [Concomitant]
     Indication: PROPHYLAXIS OF NAUSEA AND VOMITING
     Dosage: TOTAL DAILY DOSE: 30 MG
     Route: 048
     Dates: start: 20040306, end: 20040310
  30. NAUZELIN [Concomitant]
     Dosage: TOTAL DAILY DOSE: 30 MG
     Route: 048
     Dates: start: 20040206, end: 20040208

REACTIONS (5)
  - B-CELL LYMPHOMA RECURRENT [None]
  - CEREBRAL HAEMORRHAGE [None]
  - PANCYTOPENIA [None]
  - PLATELET COUNT DECREASED [None]
  - WHITE BLOOD CELL COUNT DECREASED [None]
